FAERS Safety Report 5866316-7 (Version None)
Quarter: 2008Q3

REPORT INFORMATION
  Report Type: 
  Country: None (occurrence: None)
  Receive Date: 20080901
  Receipt Date: 20080825
  Transmission Date: 20090109
  Serious: Yes (Other)
  Sender: FDA-Public Use
  Company Number: US-BAYER-200826861NA

PATIENT
  Age: 19 Year
  Sex: Female
  Weight: 58 kg

DRUGS (1)
  1. MIRENA [Suspect]
     Indication: DRUG USE FOR UNKNOWN INDICATION
     Route: 015
     Dates: start: 20071029

REACTIONS (2)
  - ABDOMINAL PAIN [None]
  - UTERINE RUPTURE [None]
